FAERS Safety Report 19964474 (Version 1)
Quarter: 2021Q4

REPORT INFORMATION
  Report Type: Spontaneous
  Country: IT (occurrence: IT)
  Receive Date: 20211018
  Receipt Date: 20211018
  Transmission Date: 20220303
  Serious: Yes (Other)
  Sender: FDA-Public Use
  Company Number: IT-HIKMA PHARMACEUTICALS USA INC.-IT-H14001-21-04448

PATIENT
  Age: 7 Month
  Sex: Female

DRUGS (11)
  1. ROCURONIUM [Suspect]
     Active Substance: ROCURONIUM BROMIDE
     Indication: General anaesthesia
     Dosage: 1 MG/KG
     Route: 065
  2. CISATRACURIUM [Suspect]
     Active Substance: CISATRACURIUM
     Indication: Maintenance of anaesthesia
     Dosage: UNKNOWN
     Route: 065
  3. PROPOFOL [Suspect]
     Active Substance: PROPOFOL
     Indication: General anaesthesia
     Dosage: 3 MG/KG
     Route: 065
  4. FENTANYL [Suspect]
     Active Substance: FENTANYL
     Indication: General anaesthesia
     Dosage: 2 MCG/KG
     Route: 065
  5. FENTANYL [Suspect]
     Active Substance: FENTANYL
     Indication: Maintenance of anaesthesia
  6. SEVOFLURANE [Suspect]
     Active Substance: SEVOFLURANE
     Indication: Maintenance of anaesthesia
     Dosage: UNKNOWN
     Route: 065
  7. MIDAZOLAM [Suspect]
     Active Substance: MIDAZOLAM
     Indication: Product used for unknown indication
     Dosage: 0.2 MG/KG/H
     Route: 042
  8. DEXTROSE [Concomitant]
     Active Substance: DEXTROSE
     Indication: Fluid replacement
     Dosage: 4 ML/KG/H
  9. ELECTROLYTIC BALANCE SOLUTION AND ALBUMIN [Concomitant]
     Indication: Fluid replacement
     Dosage: UNKNOWN
     Route: 065
  10. POTASSIUM INFUSION [Concomitant]
     Indication: Product used for unknown indication
     Dosage: UNKNOWN
     Route: 042
  11. SODIUM INFUSION [Concomitant]
     Indication: Product used for unknown indication
     Dosage: UNKNOWN
     Route: 042

REACTIONS (3)
  - Electrocardiogram QT prolonged [Recovered/Resolved]
  - Blood potassium decreased [Unknown]
  - Supraventricular extrasystoles [Recovered/Resolved]
